FAERS Safety Report 6370860-6 (Version None)
Quarter: 2009Q3

REPORT INFORMATION
  Report Type: 
  Country: None (occurrence: None)
  Receive Date: 20090923
  Receipt Date: 20070706
  Transmission Date: 20100115
  Serious: No
  Sender: FDA-Public Use
  Company Number: US-ASTRAZENECA-2006UW24972

PATIENT
  Age: 12172 Day
  Sex: Female
  Weight: 105.2 kg

DRUGS (31)
  1. SEROQUEL [Suspect]
     Indication: BIPOLAR DISORDER
     Route: 048
     Dates: start: 20050101, end: 20060101
  2. SEROQUEL [Suspect]
     Indication: SLEEP DISORDER
     Route: 048
     Dates: start: 20050101, end: 20060101
  3. SEROQUEL [Suspect]
     Indication: MANIA
     Route: 048
     Dates: start: 20050101, end: 20060101
  4. SEROQUEL [Suspect]
     Dosage: 25 MG- 200 MG
     Route: 048
     Dates: start: 20060417
  5. SEROQUEL [Suspect]
     Dosage: 25 MG- 200 MG
     Route: 048
     Dates: start: 20060417
  6. SEROQUEL [Suspect]
     Dosage: 25 MG- 200 MG
     Route: 048
     Dates: start: 20060417
  7. ABILIFY [Concomitant]
     Route: 065
  8. NEURONTIN [Concomitant]
     Route: 065
  9. PROZAC [Concomitant]
     Route: 065
  10. SYNTHROID [Concomitant]
     Route: 065
  11. ADIPEX [Concomitant]
     Route: 065
  12. EFFEXOR [Concomitant]
     Route: 065
  13. VICODIN [Concomitant]
     Route: 065
  14. ALDACTAZIDE [Concomitant]
     Route: 065
  15. PAXIL [Concomitant]
     Route: 065
     Dates: end: 20061015
  16. LAMICTAL [Concomitant]
     Dosage: 25 MG-200 MG
     Route: 065
  17. AMBIEN [Concomitant]
     Route: 065
  18. WELLBUTRIN [Concomitant]
     Route: 065
  19. LONOX [Concomitant]
     Route: 065
  20. LORAZEPAM [Concomitant]
     Route: 065
  21. GABAPENTIN [Concomitant]
     Dosage: 300 MG-400 MG
     Route: 065
  22. BUSPIRONE HCL [Concomitant]
     Route: 065
  23. AZITHROMYCIN [Concomitant]
     Route: 065
  24. CLONAZEPAM [Concomitant]
     Route: 065
  25. TRAZODONE HYDROCHLORIDE [Concomitant]
     Route: 065
  26. FLUCONAZOLE [Concomitant]
     Route: 065
  27. AMOXICILLIN [Concomitant]
     Route: 065
  28. CIPROFLAXACIN [Concomitant]
     Route: 065
  29. DOXYCYCLINE [Concomitant]
     Route: 065
  30. NAPROXEN [Concomitant]
     Route: 065
  31. DICLOFENAC [Concomitant]
     Route: 065

REACTIONS (16)
  - AGITATION [None]
  - ATTENTION DEFICIT/HYPERACTIVITY DISORDER [None]
  - BIPOLAR DISORDER [None]
  - CAFFEINE CONSUMPTION [None]
  - CERVICAL CYST [None]
  - CHEST DISCOMFORT [None]
  - DIABETES MELLITUS [None]
  - EXOSTOSIS [None]
  - GASTROENTERITIS [None]
  - GINGIVITIS [None]
  - HAEMOPTYSIS [None]
  - IRRITABILITY [None]
  - MOOD SWINGS [None]
  - PNEUMONIA [None]
  - TENDONITIS [None]
  - TORTICOLLIS [None]
